FAERS Safety Report 8803748 (Version 1)
Quarter: 2012Q4

REPORT INFORMATION
  Report Type: 
  Country: JP (occurrence: JP)
  Receive Date: 20120924
  Receipt Date: 20120924
  Transmission Date: 20130627
  Serious: Yes (Other)
  Sender: FDA-Public Use
  Company Number: JP-ASTRAZENECA-2012SE60925

PATIENT
  Age: 64 Year
  Sex: Female
  Weight: 50 kg

DRUGS (4)
  1. NEXIUM [Suspect]
     Indication: PROPHYLAXIS AGAINST GASTROINTESTINAL ULCER
     Route: 048
     Dates: start: 20120724, end: 20120811
  2. LOXONIN [Concomitant]
  3. LOXONIN [Concomitant]
     Route: 048
     Dates: start: 20120724, end: 20120811
  4. SUMILU STICK [Concomitant]
     Route: 062
     Dates: start: 20120724, end: 20120811

REACTIONS (2)
  - Eczema [Recovered/Resolved]
  - Oedema mouth [Recovered/Resolved]
